FAERS Safety Report 5345729-6 (Version None)
Quarter: 2007Q2

REPORT INFORMATION
  Report Type: 
  Country: None (occurrence: None)
  Receive Date: 20070430
  Receipt Date: 20070117
  Transmission Date: 20071010
  Serious: No
  Sender: FDA-Public Use
  Company Number: 260565

PATIENT
  Age: 62 Year
  Sex: Female
  Weight: 99.8 kg

DRUGS (5)
  1. LEVEMIR [Suspect]
     Indication: INSULIN-REQUIRING TYPE II DIABETES MELLITUS
     Dosage: SEE IMAGE
     Route: 058
     Dates: start: 20061001, end: 20070115
  2. LEVEMIR [Suspect]
     Indication: INSULIN-REQUIRING TYPE II DIABETES MELLITUS
     Dosage: SEE IMAGE
     Route: 058
     Dates: start: 20070116
  3. GLUCOVANCE [Concomitant]
  4. ASTELIN (DIPROPHYLLINE) [Concomitant]
  5. NASONEX [Concomitant]

REACTIONS (1)
  - BLOOD GLUCOSE INCREASED [None]
